FAERS Safety Report 7563834-0 (Version None)
Quarter: 2011Q2

REPORT INFORMATION
  Report Type: 
  Country: None (occurrence: None)
  Receive Date: 20110622
  Receipt Date: 20110608
  Transmission Date: 20111010
  Serious: Yes (Death)
  Sender: FDA-Public Use
  Company Number: US-WATSON-2011-08009

PATIENT
  Sex: Female
  Weight: 61 kg

DRUGS (2)
  1. FENTANYL-50 [Suspect]
     Dosage: 1 PATCH EVERY 72 HOURS
     Route: 062
     Dates: start: 20101201, end: 20110201
  2. FENTANYL-50 [Suspect]
     Indication: PAIN
     Dosage: 1 PATCH EVERY 72 HOURS
     Route: 062
     Dates: start: 20110603, end: 20110606

REACTIONS (1)
  - DEATH [None]
